FAERS Safety Report 8958711 (Version 2)
Quarter: 2013Q1

REPORT INFORMATION
  Report Type: Spontaneous
  Country: US (occurrence: US)
  Receive Date: 20121212
  Receipt Date: 20130109
  Transmission Date: 20140127
  Serious: No
  Sender: FDA-Public Use
  Company Number: US-TEVA-375286USA

PATIENT
  Sex: 0

DRUGS (1)
  1. QNASL [Suspect]
     Route: 045

REACTIONS (2)
  - Nasal polyps [Recovering/Resolving]
  - Burning sensation mucosal [Unknown]
